FAERS Safety Report 17915492 (Version 1)
Quarter: 2020Q2

REPORT INFORMATION
  Report Type: Spontaneous
  Country: CA (occurrence: CA)
  Receive Date: 20200619
  Receipt Date: 20200619
  Transmission Date: 20200714
  Serious: Yes (Hospitalization, Other)
  Sender: FDA-Public Use
  Company Number: CA-BAXTER-2020BAX011251

PATIENT
  Age: 7 Year
  Sex: Male
  Weight: 29 kg

DRUGS (4)
  1. IFEX [Suspect]
     Active Substance: IFOSFAMIDE
     Indication: NEUROBLASTOMA
     Dosage: DOSAGE FORM : POWDER FOR SOLUTION INTRAVENOUS
     Route: 042
  2. CARBOPLATIN. [Suspect]
     Active Substance: CARBOPLATIN
     Indication: NEUROBLASTOMA
     Dosage: DOSAGE FORM : SOLUTION INTRAVENOUS
     Route: 042
  3. IFEX [Suspect]
     Active Substance: IFOSFAMIDE
     Route: 042
  4. ETOPOSIDE. [Suspect]
     Active Substance: ETOPOSIDE
     Indication: NEUROBLASTOMA
     Dosage: DOSAGE FORM : NOT SPECIFIED
     Route: 042

REACTIONS (2)
  - Febrile neutropenia [Unknown]
  - Product use in unapproved indication [Unknown]
